FAERS Safety Report 5188115-4 (Version None)
Quarter: 2006Q4

REPORT INFORMATION
  Report Type: 
  Country: None (occurrence: None)
  Receive Date: 20061221
  Receipt Date: 20061129
  Transmission Date: 20070319
  Serious: Yes (Hospitalization)
  Sender: FDA-Public Use
  Company Number: JP-MERCK-0612USA00266

PATIENT
  Age: 64 Year
  Sex: Male

DRUGS (1)
  1. PEPCID RPD [Suspect]
     Indication: ULCER
     Route: 048
     Dates: start: 19990907, end: 20051210

REACTIONS (1)
  - RHABDOMYOLYSIS [None]
